FAERS Safety Report 20451707 (Version 2)
Quarter: 2022Q1

REPORT INFORMATION
  Report Type: Report from Study
  Country: US (occurrence: US)
  Receive Date: 20220209
  Receipt Date: 20220228
  Transmission Date: 20220423
  Serious: No
  Sender: FDA-Public Use
  Company Number: US-SUNOVION-2022SUN000387

PATIENT
  Age: 87 Year
  Sex: Female

DRUGS (1)
  1. KYNMOBI [Suspect]
     Active Substance: APOMORPHINE HYDROCHLORIDE
     Indication: Mobility decreased
     Dosage: 10 MG
     Route: 060
     Dates: start: 20220203, end: 20220203

REACTIONS (3)
  - Blood pressure fluctuation [Recovered/Resolved]
  - Heart rate increased [Unknown]
  - Hypertension [Recovered/Resolved]

NARRATIVE: CASE EVENT DATE: 20220203
